FAERS Safety Report 15121125 (Version 2)
Quarter: 2018Q4

REPORT INFORMATION
  Report Type: Spontaneous
  Country: US (occurrence: US)
  Receive Date: 20180709
  Receipt Date: 20181030
  Transmission Date: 20190204
  Serious: No
  Sender: FDA-Public Use
  Company Number: US-SA-2018SA179646

PATIENT
  Age: 75 Year
  Sex: Male

DRUGS (3)
  1. SAXAGLIPTIN HYDROCHLORIDE. [Concomitant]
     Active Substance: SAXAGLIPTIN HYDROCHLORIDE
     Indication: PRODUCT USED FOR UNKNOWN INDICATION
  2. LANTUS [Suspect]
     Active Substance: INSULIN GLARGINE
     Dosage: 100 U, QD
     Dates: start: 2007
  3. LANTUS [Suspect]
     Active Substance: INSULIN GLARGINE
     Indication: TYPE 2 DIABETES MELLITUS
     Dosage: 50 U, BID

REACTIONS (1)
  - Glycosylated haemoglobin increased [Not Recovered/Not Resolved]
